FAERS Safety Report 6189005-0 (Version None)
Quarter: 2009Q2

REPORT INFORMATION
  Report Type: 
  Country: None (occurrence: None)
  Receive Date: 20090511
  Receipt Date: 20090426
  Transmission Date: 20091009
  Serious: Yes (Other)
  Sender: FDA-Public Use
  Company Number: B0572699A

PATIENT
  Sex: 0

DRUGS (2)
  1. MELPHALAN       (FORMULATION UNKNOWN) (GENERIC) (MELPHALAN) [Suspect]
     Indication: ILL-DEFINED DISORDER
  2. TUMOR NECROSIS FACTOR (FORMULATION UNKNOWN) (TUMOR NECROSIS FACTOR) [Suspect]

REACTIONS (2)
  - ERYTHEMA [None]
  - OEDEMA PERIPHERAL [None]
